FAERS Safety Report 7139211-3 (Version None)
Quarter: 2010Q4

REPORT INFORMATION
  Report Type: 
  Country: None (occurrence: None)
  Receive Date: 20101202
  Receipt Date: 20101202
  Transmission Date: 20110411
  Serious: No
  Sender: FDA-Public Use
  Company Number: None

PATIENT
  Sex: Male
  Weight: 105.2345 kg

DRUGS (2)
  1. METHYLPREDNISOLONE [Suspect]
     Indication: RHEUMATOID ARTHRITIS
     Dosage: 4 MG 1-2 PER DAY PO
     Route: 048
     Dates: start: 20091001
  2. HYDROXYCHLOROQUINE SULFATE [Concomitant]

REACTIONS (1)
  - CATARACT [None]
